FAERS Safety Report 9518353 (Version 4)
Quarter: 2013Q4

REPORT INFORMATION
  Report Type: Report from Study
  Country: GB (occurrence: GB)
  Receive Date: 20130912
  Receipt Date: 20131209
  Transmission Date: 20140711
  Serious: Yes (Hospitalization, Other)
  Sender: FDA-Public Use
  Company Number: GB-MPIJNJ-2013-05720

PATIENT
  Sex: 0

DRUGS (14)
  1. VELCADE [Suspect]
     Indication: DIFFUSE LARGE B-CELL LYMPHOMA
     Dosage: 2.1 MG, UNK
     Route: 065
     Dates: start: 20130802, end: 20130809
  2. RITUXIMAB [Suspect]
     Indication: DIFFUSE LARGE B-CELL LYMPHOMA
     Dosage: 600 MG, UNK
     Route: 065
     Dates: start: 20130710, end: 20130802
  3. CYCLOPHOSPHAMIDE [Suspect]
     Indication: DIFFUSE LARGE B-CELL LYMPHOMA
     Dosage: 1200 MG, UNK
     Route: 065
     Dates: start: 20130710, end: 20130802
  4. VINCRISTINE [Suspect]
     Indication: DIFFUSE LARGE B-CELL LYMPHOMA
     Dosage: 2 MG, UNK
     Route: 065
     Dates: start: 20130710, end: 20130802
  5. DOXORUBICIN [Suspect]
     Indication: DIFFUSE LARGE B-CELL LYMPHOMA
     Dosage: 80 MG, UNK
     Route: 065
     Dates: start: 20130710, end: 20130802
  6. PREDNISOLONE [Suspect]
     Indication: DIFFUSE LARGE B-CELL LYMPHOMA
     Dosage: 100 MG, UNK
     Route: 065
     Dates: start: 20130710, end: 20130802
  7. MST                                /00036302/ [Concomitant]
     Dosage: 60 MG, UNK
     Route: 048
     Dates: start: 2013
  8. FLUCONAZOLE [Concomitant]
     Dosage: 50 MG, UNK
     Route: 048
     Dates: start: 2013
  9. ALLOPURINOL [Concomitant]
     Dosage: 300 MG, UNK
     Route: 048
     Dates: start: 20130628
  10. PREDNISOLONE [Concomitant]
     Dosage: 80 MG, UNK
     Route: 048
     Dates: start: 20130628, end: 201307
  11. TEMAZEPAM [Concomitant]
     Dosage: 10 MG, UNK
     Route: 048
     Dates: start: 2013
  12. LANSOPRAZOLE [Concomitant]
     Dosage: 30 MG, UNK
     Route: 048
     Dates: start: 20130628
  13. PROCHLORPERAZINE [Concomitant]
     Dosage: 3 MG, UNK
     Route: 048
     Dates: start: 2013
  14. CYCLIZINE [Concomitant]
     Dosage: 50 MG, UNK
     Route: 048
     Dates: start: 2013

REACTIONS (3)
  - Skin infection [Recovered/Resolved]
  - Febrile neutropenia [Recovered/Resolved]
  - Meningitis viral [Recovered/Resolved]
